FAERS Safety Report 8408258 (Version 2)
Quarter: 2013Q2

REPORT INFORMATION
  Report Type: Spontaneous
  Country: US (occurrence: None)
  Receive Date: 20111227
  Receipt Date: 20120426
  Transmission Date: 20140414
  Serious: No
  Sender: FDA-Public Use
  Company Number: PHEH2011US06842

PATIENT
  Age: 31 Year
  Sex: Female

DRUGS (6)
  1. GILENYA [Suspect]
     Indication: MULTIPLE SCLEROSIS
     Dosage: 0.5 MG, QD, ORAL
     Route: 048
     Dates: start: 20110524
  2. DYAZIDE [Concomitant]
  3. SINGULAIR [Concomitant]
  4. XYZAL [Concomitant]
  5. CONTRACEPTIVES (NO INGREDIENTS/SUBSTANCES) [Concomitant]
  6. ALLERGY MEDICATION (NO INGREDIENTS/SUBSTANCES) [Concomitant]

REACTIONS (1)
  - WEIGHT INCREASED [None]
